FAERS Safety Report 23787476 (Version 1)
Quarter: 2024Q2

REPORT INFORMATION
  Report Type: Other
  Country: US (occurrence: US)
  Receive Date: 20240426
  Receipt Date: 20240426
  Transmission Date: 20240716
  Serious: Yes (Hospitalization)
  Sender: FDA-Public Use
  Company Number: US-SIGA Technologies, Inc.-2156060

PATIENT
  Age: 30 Year
  Sex: Male
  Weight: 81.6 kg

DRUGS (9)
  1. TPOXX [Suspect]
     Active Substance: TECOVIRIMAT
     Indication: Monkeypox
     Route: 048
     Dates: start: 20240316
  2. AZITHROMYCIN MONOHYDRATE [Suspect]
     Active Substance: AZITHROMYCIN MONOHYDRATE
     Route: 048
     Dates: start: 20240311, end: 20240315
  3. EMTRICITABINE AND TENOFOVIR DISOPROXIL FUMARATE [Concomitant]
     Active Substance: EMTRICITABINE\TENOFOVIR DISOPROXIL FUMARATE
  4. FAMOTIDINE [Concomitant]
     Active Substance: FAMOTIDINE
  5. DIPHENHYDRAMINE [Concomitant]
     Active Substance: DIPHENHYDRAMINE
  6. UNSPECIFIED INGREDIENT [Concomitant]
     Active Substance: UNSPECIFIED INGREDIENT
  7. CEFTRIAXONE [Concomitant]
     Active Substance: CEFTRIAXONE\CEFTRIAXONE SODIUM
     Route: 030
     Dates: start: 20240311
  8. DOXYCYCLINE [Concomitant]
     Active Substance: DOXYCYCLINE
  9. AMOXICILLIN [Suspect]
     Active Substance: AMOXICILLIN
     Route: 048
     Dates: start: 20240314, end: 20240316

REACTIONS (3)
  - Hypersensitivity [Recovered/Resolved]
  - Diarrhoea [Unknown]
  - Peritonsillar abscess [Unknown]

NARRATIVE: CASE EVENT DATE: 20240317
